FAERS Safety Report 6686229-0 (Version None)
Quarter: 2010Q2

REPORT INFORMATION
  Report Type: 
  Country: None (occurrence: None)
  Receive Date: 20100415
  Receipt Date: 20100415
  Transmission Date: 20101027
  Serious: Yes (Hospitalization)
  Sender: FDA-Public Use
  Company Number: None

PATIENT
  Sex: Female
  Weight: 59 kg

DRUGS (16)
  1. METRONIDAZOLE [Suspect]
     Indication: PNEUMONIA ASPIRATION
     Dosage: 500 MG Q6HRS IV BOLUS
     Route: 040
     Dates: start: 20100331, end: 20100409
  2. METRONIDAZOLE [Suspect]
     Indication: SUBDIAPHRAGMATIC ABSCESS
     Dosage: 500 MG Q6HRS IV BOLUS
     Route: 040
     Dates: start: 20100331, end: 20100409
  3. ZOCOR [Concomitant]
  4. CELEXA [Concomitant]
  5. CORGARD [Concomitant]
  6. VISTARIL [Concomitant]
  7. ZOFRAN [Concomitant]
  8. BACLOFEN [Concomitant]
  9. TYLENOL-500 [Concomitant]
  10. DOXEPIN HCL [Concomitant]
  11. LYRICA [Concomitant]
  12. TRAZODONE HCL [Concomitant]
  13. DIFLUCAN [Concomitant]
  14. GENTAMICIN [Concomitant]
  15. VANCOMYCIN [Concomitant]
  16. ZOSYN [Concomitant]

REACTIONS (1)
  - NEUROTOXICITY [None]
